FAERS Safety Report 12630326 (Version 1)
Quarter: 2016Q3

REPORT INFORMATION
  Report Type: Report from Study
  Country: US (occurrence: US)
  Receive Date: 20160808
  Receipt Date: 20160808
  Transmission Date: 20161109
  Serious: No
  Sender: FDA-Public Use
  Company Number: US-AMGEN-USASL2016100328

PATIENT
  Age: 53 Year
  Sex: Female

DRUGS (1)
  1. ENBREL [Suspect]
     Active Substance: ETANERCEPT
     Indication: RHEUMATOID ARTHRITIS
     Dosage: 50 MG, QWK
     Route: 065
     Dates: start: 20160629

REACTIONS (7)
  - Muscle strain [Unknown]
  - Peripheral swelling [Unknown]
  - Cough [Unknown]
  - Erythema [Unknown]
  - Rhinorrhoea [Unknown]
  - Arthralgia [Unknown]
  - Feeling cold [Unknown]

NARRATIVE: CASE EVENT DATE: 201608
